FAERS Safety Report 7201705-X (Version None)
Quarter: 2010Q4

REPORT INFORMATION
  Report Type: 
  Country: None (occurrence: None)
  Receive Date: 20101229
  Receipt Date: 20101216
  Transmission Date: 20110411
  Serious: Yes (Hospitalization)
  Sender: FDA-Public Use
  Company Number: NO-ELI_LILLY_AND_COMPANY-NO201012004310

PATIENT
  Sex: Male

DRUGS (6)
  1. ZYPADHERA [Suspect]
     Indication: ATTENTION DEFICIT/HYPERACTIVITY DISORDER
     Dosage: 210 MG, EVERY TWO WEEKS
     Route: 030
  2. LEPONEX [Concomitant]
     Dosage: 100 D/F, UNK
  3. LEPONEX [Concomitant]
     Dosage: 300 D/F, UNK
  4. ABILIFY [Concomitant]
  5. RITALIN [Concomitant]
     Indication: ATTENTION DEFICIT/HYPERACTIVITY DISORDER
     Dosage: 110 MG, UNK
  6. BENZO [Concomitant]

REACTIONS (3)
  - FEAR [None]
  - OFF LABEL USE [None]
  - PSYCHOTIC DISORDER [None]
